FAERS Safety Report 22184242 (Version 1)
Quarter: 2023Q2

REPORT INFORMATION
  Report Type: Spontaneous
  Country: US (occurrence: US)
  Receive Date: 20230407
  Receipt Date: 20230407
  Transmission Date: 20230721
  Serious: No
  Sender: FDA-Public Use
  Company Number: US-CADILA HEALTHCARE LIMITED-US-ZYDUS-084067

PATIENT

DRUGS (2)
  1. BOSENTAN [Suspect]
     Active Substance: BOSENTAN
     Indication: Pulmonary arterial hypertension
     Dosage: , UNK
     Route: 065
     Dates: start: 20210824
  2. MOTRIN IB [Suspect]
     Active Substance: IBUPROFEN
     Indication: Gout
     Dosage: UNK
     Route: 065

REACTIONS (3)
  - Peripheral swelling [Recovering/Resolving]
  - Product dose omission issue [Not Recovered/Not Resolved]
  - Gout [Recovering/Resolving]

NARRATIVE: CASE EVENT DATE: 20221001
